FAERS Safety Report 16969267 (Version 1)
Quarter: 2019Q4

REPORT INFORMATION
  Report Type: Spontaneous
  Country: FR (occurrence: FR)
  Receive Date: 20191029
  Receipt Date: 20191029
  Transmission Date: 20200122
  Serious: Yes (Hospitalization, Other)
  Sender: FDA-Public Use
  Company Number: FR-AUROBINDO-AUR-APL-2019-068789

PATIENT
  Age: 82 Year
  Sex: Male
  Weight: 58 kg

DRUGS (1)
  1. LEVOFLOXACIN ARROW 5 MG/ML SOLUTION FOR INFUSION [Suspect]
     Active Substance: LEVOFLOXACIN
     Indication: LUNG DISORDER
     Dosage: 500 MILLIGRAM, TWO TIMES A DAY
     Route: 042
     Dates: start: 20190925, end: 20190926

REACTIONS (2)
  - Electrocardiogram QT prolonged [Recovering/Resolving]
  - Arrhythmia [Recovering/Resolving]

NARRATIVE: CASE EVENT DATE: 20190926
